FAERS Safety Report 14841457 (Version 1)
Quarter: 2018Q2

REPORT INFORMATION
  Report Type: Report from Study
  Country: US (occurrence: US)
  Receive Date: 20180503
  Receipt Date: 20180503
  Transmission Date: 20180711
  Serious: Yes (Hospitalization, Other)
  Sender: FDA-Public Use
  Company Number: US-ALEXION PHARMACEUTICALS INC.-A201805376

PATIENT
  Sex: Male

DRUGS (1)
  1. SOLIRIS [Suspect]
     Active Substance: ECULIZUMAB
     Indication: ATYPICAL HAEMOLYTIC URAEMIC SYNDROME
     Dosage: UNK
     Route: 065
     Dates: end: 201611

REACTIONS (5)
  - Scar [Unknown]
  - Bile duct obstruction [Unknown]
  - Liver abscess [Not Recovered/Not Resolved]
  - Bile duct necrosis [Unknown]
  - Portal vein thrombosis [Unknown]
